FAERS Safety Report 10667749 (Version 1)
Quarter: 2014Q4

REPORT INFORMATION
  Report Type: Spontaneous
  Country: CH (occurrence: CH)
  Receive Date: 20141222
  Receipt Date: 20141222
  Transmission Date: 20150529
  Serious: Yes (Other)
  Sender: FDA-Public Use
  Company Number: PHHY2014CH163387

PATIENT
  Age: 89 Year
  Sex: Female

DRUGS (8)
  1. PANTOZOL [Concomitant]
     Active Substance: PANTOPRAZOLE SODIUM
  2. METFIN [Concomitant]
     Active Substance: METFORMIN HYDROCHLORIDE
  3. CALCIUM [Concomitant]
     Active Substance: CALCIUM
  4. CIP ECO [Suspect]
     Active Substance: CIPROFLOXACIN HYDROCHLORIDE
     Indication: CYSTITIS
     Dosage: 500 MG, BID
     Dates: start: 20140502, end: 20140505
  5. ASPIRIN. [Concomitant]
     Active Substance: ASPIRIN
  6. DIAMICRON [Concomitant]
     Active Substance: GLICLAZIDE
  7. DAFALGAN [Concomitant]
     Active Substance: ACETAMINOPHEN
  8. FLUOXETINE [Concomitant]
     Active Substance: FLUOXETINE\FLUOXETINE HYDROCHLORIDE

REACTIONS (3)
  - Muscle spasms [Recovered/Resolved]
  - Choreoathetosis [Recovered/Resolved]
  - Dyskinesia [Recovered/Resolved]

NARRATIVE: CASE EVENT DATE: 20140505
